FAERS Safety Report 23732750 (Version 2)
Quarter: 2024Q2

REPORT INFORMATION
  Report Type: Report from Study
  Country: US (occurrence: US)
  Receive Date: 20240411
  Receipt Date: 20240422
  Transmission Date: 20240716
  Serious: Yes (Hospitalization, Other)
  Sender: FDA-Public Use
  Company Number: US-BRIAN CONNER SVP QUALITY AND CHIEF COMPLIANCE OFFICER-2023XER02372

PATIENT
  Age: 37 Year
  Sex: Female

DRUGS (3)
  1. RECORLEV [Suspect]
     Active Substance: LEVOKETOCONAZOLE
     Indication: Pituitary-dependent Cushing^s syndrome
     Dosage: 150 MG, 2X/DAY
     Route: 048
     Dates: start: 20231206
  2. RECORLEV [Suspect]
     Active Substance: LEVOKETOCONAZOLE
     Dosage: 1 TABLET (150 MG), 1X/DAY IN THE MORNING
     Route: 048
  3. RECORLEV [Suspect]
     Active Substance: LEVOKETOCONAZOLE
     Dosage: 2 TABLETS (300 MG), 1X/DAY AT NIGHT
     Route: 048

REACTIONS (5)
  - Hospitalisation [Not Recovered/Not Resolved]
  - Neoplasm [Unknown]
  - Somnolence [Not Recovered/Not Resolved]
  - Fatigue [Not Recovered/Not Resolved]
  - Headache [Not Recovered/Not Resolved]

NARRATIVE: CASE EVENT DATE: 20231201
